FAERS Safety Report 7201969-2 (Version None)
Quarter: 2010Q4

REPORT INFORMATION
  Report Type: 
  Country: None (occurrence: None)
  Receive Date: 20101229
  Receipt Date: 20101221
  Transmission Date: 20110411
  Serious: Yes (Hospitalization)
  Sender: FDA-Public Use
  Company Number: US-US-EMD SERONO, INC.-7028783

PATIENT
  Sex: Male
  Weight: 77 kg

DRUGS (2)
  1. REBIF [Suspect]
     Indication: MULTIPLE SCLEROSIS
     Dates: start: 20101012, end: 20101112
  2. GABAPENTIN [Suspect]
     Indication: MULTIPLE SCLEROSIS
     Dates: end: 20101101

REACTIONS (3)
  - BALANCE DISORDER [None]
  - DYSARTHRIA [None]
  - LIVER FUNCTION TEST ABNORMAL [None]
